FAERS Safety Report 8402171 (Version 3)
Quarter: 2012Q4

REPORT INFORMATION
  Report Type: Report from Study
  Country: IT (occurrence: IT)
  Receive Date: 20120213
  Receipt Date: 20120912
  Transmission Date: 20130627
  Serious: Yes (Hospitalization)
  Sender: FDA-Public Use
  Company Number: IT-JNJFOC-20120203257

PATIENT
  Age: 13 Year
  Sex: Male
  Weight: 40.2 kg

DRUGS (4)
  1. INFLIXIMAB, RECOMBINANT [Suspect]
     Indication: CROHN^S DISEASE
     Route: 042
     Dates: start: 20101104, end: 20111205
  2. ANTIBIOTICS [Concomitant]
     Indication: CROHN^S DISEASE
     Route: 048
  3. 5-ASA [Concomitant]
     Route: 054
  4. PROBIOTICS [Concomitant]

REACTIONS (1)
  - Crohn^s disease [Recovered/Resolved with Sequelae]
